FAERS Safety Report 6957640-5 (Version None)
Quarter: 2010Q3

REPORT INFORMATION
  Report Type: 
  Country: None (occurrence: None)
  Receive Date: 20100831
  Receipt Date: 20100818
  Transmission Date: 20110219
  Serious: Yes (Other)
  Sender: FDA-Public Use
  Company Number: CA-ELI_LILLY_AND_COMPANY-CA201008005181

PATIENT
  Age: 14 Year
  Sex: Female

DRUGS (1)
  1. STRATTERA [Suspect]
     Dosage: 60 MG, UNK

REACTIONS (5)
  - ANXIETY [None]
  - CRYING [None]
  - DEPRESSED MOOD [None]
  - HOMICIDAL IDEATION [None]
  - SUICIDAL IDEATION [None]
